FAERS Safety Report 25841337 (Version 1)
Quarter: 2025Q3

REPORT INFORMATION
  Report Type: Spontaneous
  Country: US (occurrence: US)
  Receive Date: 20250924
  Receipt Date: 20250924
  Transmission Date: 20251020
  Serious: No
  Sender: MADRIGAL PHARMACEUTICALS
  Company Number: US-MADRIGAL PHARMACEUTICALS, INC-2025REZ8771

PATIENT

DRUGS (4)
  1. REZDIFFRA [Suspect]
     Active Substance: RESMETIROM
     Indication: Metabolic dysfunction-associated steatohepatitis
     Dosage: 80 MILLIGRAM, QD
     Route: 048
     Dates: start: 20250502, end: 20250528
  2. TIRZEPATIDE [Concomitant]
     Active Substance: TIRZEPATIDE
  3. ESCITALOPRAM [Concomitant]
     Active Substance: ESCITALOPRAM OXALATE
  4. VOQUEZNA [Concomitant]
     Active Substance: VONOPRAZAN FUMARATE

REACTIONS (6)
  - Tremor [Recovered/Resolved]
  - Fatigue [Recovered/Resolved]
  - Head discomfort [Recovered/Resolved]
  - Disorientation [Recovered/Resolved]
  - Aphasia [Recovered/Resolved]
  - Dizziness [Recovered/Resolved]

NARRATIVE: CASE EVENT DATE: 20250501
